FAERS Safety Report 25231199 (Version 1)
Quarter: 2025Q2

REPORT INFORMATION
  Report Type: Report from Study
  Country: US (occurrence: US)
  Receive Date: 20250423
  Receipt Date: 20250423
  Transmission Date: 20250717
  Serious: Yes (Other)
  Sender: ALEXION PHARMACEUTICALS
  Company Number: US-AstraZeneca-CH-00851332A

PATIENT

DRUGS (2)
  1. OLAPARIB [Suspect]
     Active Substance: OLAPARIB
     Indication: Ovarian cancer
     Dosage: 200 MILLIGRAM
  2. GABAPENTIN [Concomitant]
     Active Substance: GABAPENTIN
     Route: 065

REACTIONS (3)
  - Haemorrhage [Unknown]
  - Neck pain [Unknown]
  - Stress [Unknown]
